FAERS Safety Report 8992922 (Version 1)
Quarter: 2013Q1

REPORT INFORMATION
  Report Type: Report from Study
  Country: US (occurrence: US)
  Receive Date: 20130102
  Receipt Date: 20130102
  Transmission Date: 20140127
  Serious: Yes (Hospitalization)
  Sender: FDA-Public Use
  Company Number: US-JNJFOC-20121211557

PATIENT
  Age: 11 Year
  Sex: Female
  Weight: 52.8 kg

DRUGS (3)
  1. REMICADE [Suspect]
     Indication: INFLAMMATORY BOWEL DISEASE
     Route: 042
     Dates: start: 20100831
  2. HUMIRA [Concomitant]
     Dates: start: 20101028
  3. PRILOSEC [Concomitant]

REACTIONS (1)
  - Pleurisy [Recovered/Resolved]
